FAERS Safety Report 19442977 (Version 1)
Quarter: 2021Q2

REPORT INFORMATION
  Report Type: Spontaneous
  Country: US (occurrence: US)
  Receive Date: 20210618
  Receipt Date: 20210618
  Transmission Date: 20210717
  Serious: Yes (Other)
  Sender: FDA-Public Use
  Company Number: None

PATIENT
  Sex: Male

DRUGS (16)
  1. LATANOPROST. [Concomitant]
     Active Substance: LATANOPROST
  2. TIMOOL MAL OP [Concomitant]
  3. ALFUZOSIN [Concomitant]
     Active Substance: ALFUZOSIN
  4. DOXAZOSIN [Concomitant]
     Active Substance: DOXAZOSIN MESYLATE
  5. LEVOTHYROXINE. [Concomitant]
     Active Substance: LEVOTHYROXINE
  6. LISINOPRIL. [Concomitant]
     Active Substance: LISINOPRIL
  7. KEYTRUDA [Concomitant]
     Active Substance: PEMBROLIZUMAB
  8. LIDOCAINE. [Concomitant]
     Active Substance: LIDOCAINE
  9. SODIUM BICAR [Concomitant]
  10. VERAPAMIL [Concomitant]
     Active Substance: VERAPAMIL HYDROCHLORIDE
  11. VICTOZA [Concomitant]
     Active Substance: LIRAGLUTIDE
  12. ADVIL COLD/SINUS [Concomitant]
  13. HYDROCO/APAP [Concomitant]
     Active Substance: ACETAMINOPHEN\HYDROCODONE
  14. FAMOTIDINE. [Concomitant]
     Active Substance: FAMOTIDINE
  15. INLYTA [Suspect]
     Active Substance: AXITINIB
     Indication: RENAL CANCER
     Route: 048
     Dates: start: 20200807, end: 202105
  16. TRESIBA FLEX [Concomitant]

REACTIONS (2)
  - Metastases to bone [None]
  - Therapy interrupted [None]
